FAERS Safety Report 20495294 (Version 2)
Quarter: 2022Q4

REPORT INFORMATION
  Report Type: Spontaneous
  Country: US (occurrence: US)
  Receive Date: 20220221
  Receipt Date: 20221020
  Transmission Date: 20230113
  Serious: Yes (Hospitalization, Other)
  Sender: FDA-Public Use
  Company Number: US-PFIZER INC-202200232449

PATIENT
  Age: 62 Year
  Sex: Female
  Weight: 61.23 kg

DRUGS (2)
  1. SOLU-MEDROL [Suspect]
     Active Substance: METHYLPREDNISOLONE SODIUM SUCCINATE
     Indication: Rash
     Dosage: 3 DOSES, AND THINKS IT WAS A TOTAL OF 150MG
     Dates: start: 20220112, end: 202201
  2. SOLU-MEDROL [Suspect]
     Active Substance: METHYLPREDNISOLONE SODIUM SUCCINATE
     Indication: Pruritus
     Dosage: 3 DF, 3X/DAY (IV I TID X 3 DOSES ONLY)
     Route: 042
     Dates: start: 20220114, end: 20220115

REACTIONS (4)
  - Dizziness [Not Recovered/Not Resolved]
  - Deafness [Not Recovered/Not Resolved]
  - Tinnitus [Not Recovered/Not Resolved]
  - Gait inability [Not Recovered/Not Resolved]

NARRATIVE: CASE EVENT DATE: 20220101
